FAERS Safety Report 5161833-X (Version None)
Quarter: 2006Q4

REPORT INFORMATION
  Report Type: 
  Country: None (occurrence: None)
  Receive Date: 20061130
  Receipt Date: 20060927
  Transmission Date: 20070319
  Serious: Yes (Other)
  Sender: FDA-Public Use
  Company Number: US-GLAXOSMITHKLINE-A0621590A

PATIENT
  Age: 25 Year
  Sex: Male

DRUGS (2)
  1. WELLBUTRIN XL [Suspect]
     Indication: MAJOR DEPRESSION
     Dosage: 300MG PER DAY
     Route: 048
     Dates: start: 20060913, end: 20060920
  2. NO CONCURRENT MEDICATIONS [Concomitant]

REACTIONS (1)
  - CONVULSION [None]
